FAERS Safety Report 8374504-3 (Version None)
Quarter: 2012Q2

REPORT INFORMATION
  Report Type: 
  Country: None (occurrence: None)
  Receive Date: 20120521
  Receipt Date: 20120508
  Transmission Date: 20120825
  Serious: Yes (Other)
  Sender: FDA-Public Use
  Company Number: CA-JNJFOC-20120508568

PATIENT
  Sex: Male
  Weight: 75 kg

DRUGS (2)
  1. IMURAN [Concomitant]
     Route: 048
  2. REMICADE [Suspect]
     Indication: COLITIS ULCERATIVE
     Route: 042
     Dates: start: 20110613, end: 20120404

REACTIONS (2)
  - THERAPEUTIC RESPONSE DECREASED [None]
  - SURGERY [None]
